FAERS Safety Report 17604229 (Version 1)
Quarter: 2020Q1

REPORT INFORMATION
  Report Type: Spontaneous
  Country: AR (occurrence: AR)
  Receive Date: 20200331
  Receipt Date: 20200331
  Transmission Date: 20200409
  Serious: Yes (Other)
  Sender: FDA-Public Use
  Company Number: AR-PFIZER INC-2020131391

PATIENT
  Age: 76 Year
  Sex: Female

DRUGS (1)
  1. IBRANCE [Suspect]
     Active Substance: PALBOCICLIB
     Indication: BREAST CANCER METASTATIC
     Dosage: 100 MG, CYCLIC (3X1 SCHEME)
     Dates: start: 20170721

REACTIONS (5)
  - Pain [Unknown]
  - White blood cell disorder [Unknown]
  - Osteonecrosis [Unknown]
  - Resorption bone increased [Unknown]
  - Gingival disorder [Unknown]
